FAERS Safety Report 9605299 (Version 3)
Quarter: 2014Q2

REPORT INFORMATION
  Report Type: Report from Study
  Country: NL (occurrence: NL)
  Receive Date: 20131008
  Receipt Date: 20140603
  Transmission Date: 20141212
  Serious: Yes (Death, Hospitalization, Other)
  Sender: FDA-Public Use
  Company Number: NL-SA-CLOF-1002670

PATIENT
  Age: 53 Year
  Sex: Female
  Weight: 61 kg

DRUGS (27)
  1. CLOFARABINE [Suspect]
     Indication: ACUTE MYELOID LEUKAEMIA
     Dosage: 17 MG, (D2, D4,D6,D8,D10) (INDUCTION THERAPY); 1 HOUR INFUSION
     Route: 042
     Dates: start: 20130516
  2. CYTARABINE [Suspect]
     Indication: ACUTE MYELOID LEUKAEMIA
     Dosage: 170 MG, INDUCTION THERAPY (CONTINOUS INFUSION)
     Route: 042
     Dates: start: 20130515
  3. IDARUBICIN [Suspect]
     Indication: ACUTE MYELOID LEUKAEMIA
     Dosage: 17 MG, UNK (INDUCTION THERAPY)
     Route: 042
     Dates: start: 20130515
  4. ALL OTHER THERAPEUTIC PRODUCTS [Concomitant]
     Indication: PRODUCT USED FOR UNKNOWN INDICATION
     Dosage: UNK
     Route: 065
     Dates: start: 20130516
  5. MORPHINE [Concomitant]
     Route: 042
     Dates: start: 20130517, end: 20130517
  6. MORPHINE [Concomitant]
     Route: 058
     Dates: start: 20130519, end: 20130519
  7. MORPHINE [Concomitant]
     Route: 058
     Dates: start: 20130525, end: 20130525
  8. MORPHINE [Concomitant]
     Route: 058
     Dates: start: 20130527, end: 20130527
  9. MORPHINE [Concomitant]
     Dosage: DOSE: 2.5 OR 5 MG; ROUTE: IV OR SC
     Dates: end: 20130531
  10. MORPHINE [Concomitant]
     Dosage: 2 ML PER HR
     Dates: start: 20130518, end: 20130518
  11. MORPHINE [Concomitant]
     Dosage: 3 ML PER HR
     Dates: start: 20130520, end: 20130520
  12. MORPHINE [Concomitant]
     Dosage: 1 ML PER HR
     Dates: start: 20130522, end: 20130522
  13. METRONIDAZOLE [Concomitant]
     Indication: URINARY TRACT INFECTION
     Dosage: 500 MG, TID
     Route: 048
     Dates: start: 20130513, end: 20130521
  14. METRONIDAZOLE [Concomitant]
     Dosage: 500 MG, TID
     Route: 048
     Dates: start: 20130513, end: 20130521
  15. METRONIDAZOLE [Concomitant]
     Indication: URINARY TRACT INFECTION
     Route: 042
     Dates: start: 20130522, end: 20130531
  16. METRONIDAZOLE [Concomitant]
     Route: 042
     Dates: start: 20130522, end: 20130531
  17. FLUCONAZOLE [Concomitant]
     Indication: CANDIDA INFECTION
     Dosage: 400 MG, QD
     Route: 048
     Dates: start: 20130515, end: 20130522
  18. OXYCODONE [Concomitant]
     Indication: ABDOMINAL PAIN
     Dosage: 5 MG, PRN
     Route: 048
     Dates: start: 20130513, end: 20130517
  19. ALL OTHER THERAPEUTIC PRODUCTS [Concomitant]
     Indication: CHRONIC OBSTRUCTIVE PULMONARY DISEASE
     Dosage: 1 DF (1/2 X 2.5 MG), 6 DD (INHALATION)
     Route: 065
  20. RASBURICASE [Concomitant]
     Indication: PROPHYLAXIS
     Dosage: 6 MG, QD
     Route: 042
     Dates: start: 20130512, end: 20130515
  21. PREDNISOLONE [Concomitant]
     Indication: ACUTE RESPIRATORY DISTRESS SYNDROME
     Dosage: 100 MG, BID
     Route: 042
     Dates: start: 20130513, end: 20130515
  22. PREDNISOLONE [Concomitant]
     Indication: PROPHYLAXIS
     Dosage: 100 MG, BID
     Route: 042
     Dates: start: 20130513, end: 20130515
  23. HYDROXYCARBAMIDE [Concomitant]
     Indication: LEUKOCYTOSIS
     Dosage: 3000 MG, QD
     Route: 048
     Dates: start: 20130502, end: 20130514
  24. CIPROFLOXACIN [Concomitant]
     Indication: URINARY TRACT INFECTION
     Dosage: 500 MG, BID
     Route: 048
     Dates: start: 20130516, end: 20130531
  25. CASPOFUNGIN [Concomitant]
     Indication: CANDIDA INFECTION
     Dosage: 70 MG, QD
     Route: 042
     Dates: start: 20130522, end: 20130531
  26. TEICOPLANIN [Concomitant]
     Indication: INFECTION
     Dosage: 800 MG, ONCE
     Route: 042
     Dates: start: 20130531
  27. HYDROCORTISONE [Concomitant]
     Indication: PERIPHERAL VENOUS DISEASE
     Dosage: 100 MG, TID
     Route: 042
     Dates: start: 20130531, end: 20130531

REACTIONS (11)
  - Staphylococcus test positive [Fatal]
  - Atrial fibrillation [Unknown]
  - Pleural effusion [Unknown]
  - Pancytopenia [Not Recovered/Not Resolved]
  - Haematuria [Unknown]
  - Bronchopulmonary aspergillosis [Fatal]
  - Atelectasis [Fatal]
  - Colitis [Fatal]
  - Fluid retention [Fatal]
  - Septic shock [Fatal]
  - Respiratory failure [Fatal]
